FAERS Safety Report 4675625-9 (Version None)
Quarter: 2005Q2

REPORT INFORMATION
  Report Type: 
  Country: None (occurrence: None)
  Receive Date: 20050525
  Receipt Date: 20050516
  Transmission Date: 20051028
  Serious: Yes (Hospitalization)
  Sender: FDA-Public Use
  Company Number: 2005-04-0698

PATIENT
  Age: 31 Year
  Sex: Female
  Weight: 46 kg

DRUGS (14)
  1. PEG-INTRON [Suspect]
     Indication: HEPATITIS C
     Dosage: 80-60 MCG QW* SUBCUTANEOUS
     Route: 058
     Dates: start: 20050225, end: 20050303
  2. PEG-INTRON [Suspect]
     Indication: HEPATITIS C
     Dosage: 80-60 MCG QW* SUBCUTANEOUS
     Route: 058
     Dates: start: 20050304, end: 20050411
  3. PEG-INTRON [Suspect]
     Indication: HEPATITIS C
     Dosage: 80-60 MCG QW* SUBCUTANEOUS
     Route: 058
     Dates: start: 20050423, end: 20050428
  4. REBETOL [Suspect]
     Indication: HEPATITIS C
     Dosage: 400 MG* ORAL
     Route: 048
     Dates: start: 20050225, end: 20050412
  5. REBETOL [Suspect]
     Indication: HEPATITIS C
     Dosage: 400 MG* ORAL
     Route: 048
     Dates: start: 20050423, end: 20050428
  6. PROMAC (POLAPREZINC) GRANULES [Concomitant]
  7. VOLTAREN [Concomitant]
  8. LENDORMIN TABLETS [Concomitant]
  9. GASTROINTESTINAL DRUG (NOS) ORAL POWDER [Concomitant]
  10. URINORM TABLETS [Concomitant]
  11. DEPAS TABLETS [Concomitant]
  12. CYTOTEC [Concomitant]
  13. PARIET (RABEPRAZOLE SODIUM) TABLETS [Concomitant]
  14. REBAMIPIDE TABLETS [Concomitant]

REACTIONS (6)
  - ANOREXIA [None]
  - BLOOD CALCIUM DECREASED [None]
  - DRUG INTERACTION [None]
  - HYPOAESTHESIA [None]
  - MYALGIA [None]
  - TETANY [None]
